FAERS Safety Report 9592412 (Version 1)
Quarter: 2013Q3

REPORT INFORMATION
  Report Type: Spontaneous
  Country: US (occurrence: None)
  Receive Date: 20130930
  Receipt Date: 20130930
  Transmission Date: 20140515
  Serious: Yes (Other)
  Sender: FDA-Public Use
  Company Number: 1000046746

PATIENT
  Age: 76 Year
  Sex: Female

DRUGS (8)
  1. LINZESS [Suspect]
     Indication: CONSTIPATION
     Route: 048
     Dates: start: 201305, end: 2013
  2. LINZESS [Suspect]
     Indication: CONSTIPATION
     Dates: start: 2013, end: 201307
  3. SYNTHROID(LEVOTHYROXINE SODIUM)(LEVOTHYROXINE SODIUM) [Concomitant]
  4. AZOPT(BRINZOLAMIDE)(BRINZOLAMIDE) [Concomitant]
  5. FORTICAL(CALCITONIN SALMON)(CALCITONIN SALMON) [Concomitant]
  6. VITAMIN D (VITAMIN D)(VITAMIN D) [Concomitant]
  7. CYMBALTA(DULOXETINE HYDROCHLORIDE)(DULOXETINE HYDROCHLORIDE) [Concomitant]
  8. DAYPRO(OXAPROZIN)(OXAPROZIN) [Concomitant]

REACTIONS (3)
  - Diarrhoea [None]
  - Abdominal distension [None]
  - Constipation [None]
